FAERS Safety Report 7715241-5 (Version None)
Quarter: 2011Q3

REPORT INFORMATION
  Report Type: 
  Country: None (occurrence: None)
  Receive Date: 20110829
  Receipt Date: 20110823
  Transmission Date: 20111222
  Serious: Yes (Death)
  Sender: FDA-Public Use
  Company Number: PHHY2011BR75435

PATIENT
  Sex: Male

DRUGS (3)
  1. DIOVAN HCT [Suspect]
     Dosage: 160 MG OF AMLO AND 12.5 MG OF HYD
  2. DIOVAN [Suspect]
  3. EXFORGE [Suspect]
     Dosage: 160 MG OF VALS AND 5 MG OF AMLO

REACTIONS (1)
  - DEATH [None]
